FAERS Safety Report 7222951-5 (Version None)
Quarter: 2011Q1

REPORT INFORMATION
  Report Type: 
  Country: None (occurrence: None)
  Receive Date: 20110112
  Receipt Date: 20101229
  Transmission Date: 20110831
  Serious: No
  Sender: FDA-Public Use
  Company Number: US-B.I. PHARMACEUTICALS,INC./RIDGEFIELD-2011-BP-00405BP

PATIENT
  Sex: Female

DRUGS (2)
  1. TARCEVA [Concomitant]
     Indication: LUNG NEOPLASM MALIGNANT
     Dates: start: 20100708
  2. PRADAXA [Suspect]
     Indication: ATRIAL FIBRILLATION
     Dosage: 300 MG
     Route: 048
     Dates: start: 20101225

REACTIONS (5)
  - NASAL DRYNESS [None]
  - OROPHARYNGEAL PAIN [None]
  - EPISTAXIS [None]
  - SENSATION OF FOREIGN BODY [None]
  - NASAL OEDEMA [None]
